FAERS Safety Report 18510804 (Version 2)
Quarter: 2021Q4

REPORT INFORMATION
  Report Type: Spontaneous
  Country: US (occurrence: US)
  Receive Date: 20201117
  Receipt Date: 20211117
  Transmission Date: 20220303
  Serious: No
  Sender: FDA-Public Use
  Company Number: US-ALLERGAN-2036835US

PATIENT
  Age: 39 Year
  Sex: Male

DRUGS (1)
  1. COMBIGAN [Suspect]
     Active Substance: BRIMONIDINE TARTRATE\TIMOLOL MALEATE
     Indication: Open angle glaucoma
     Dosage: 2 GTT, BID
     Route: 047
     Dates: start: 20200919, end: 20200923

REACTIONS (4)
  - Eye swelling [Recovered/Resolved]
  - Discomfort [Recovered/Resolved]
  - Ocular hyperaemia [Recovered/Resolved]
  - Product outer packaging issue [Unknown]

NARRATIVE: CASE EVENT DATE: 20200919
